FAERS Safety Report 24693563 (Version 1)
Quarter: 2024Q4

REPORT INFORMATION
  Report Type: Report from Study
  Country: US (occurrence: US)
  Receive Date: 20241204
  Receipt Date: 20241204
  Transmission Date: 20250115
  Serious: Yes (Hospitalization)
  Sender: TAKEDA
  Company Number: US-TAKEDA-2023TUS116958

PATIENT
  Sex: Male
  Weight: 29 kg

DRUGS (13)
  1. TEDUGLUTIDE [Suspect]
     Active Substance: TEDUGLUTIDE
     Indication: Short-bowel syndrome
     Dosage: 1.3 MILLIGRAM, QD
  2. TEDUGLUTIDE [Suspect]
     Active Substance: TEDUGLUTIDE
     Dosage: 1.5 MILLIGRAM, QD
  3. TEDUGLUTIDE [Suspect]
     Active Substance: TEDUGLUTIDE
     Dosage: 1.5 MILLIGRAM, QD
  4. TEDUGLUTIDE [Suspect]
     Active Substance: TEDUGLUTIDE
  5. CALCIUM CARBONATE [Concomitant]
     Active Substance: CALCIUM CARBONATE
     Dosage: UNK
  6. HYDROCORTISONE 1% IN ABSORBASE [Concomitant]
     Active Substance: HYDROCORTISONE
     Dosage: UNK
  7. SOLU-CORTEF [Concomitant]
     Active Substance: HYDROCORTISONE SODIUM SUCCINATE
     Dosage: UNK
  8. BUDESONIDE [Concomitant]
     Active Substance: BUDESONIDE
     Dosage: UNK MILLIGRAM
  9. SULFAMETHOXAZOLE AND TRIMETHOPRIM [Concomitant]
     Active Substance: SULFAMETHOXAZOLE\TRIMETHOPRIM
     Dosage: UNK
  10. VENOFER [Concomitant]
     Active Substance: IRON SUCROSE
     Dosage: UNK
  11. METRONIDAZOLE [Concomitant]
     Active Substance: METRONIDAZOLE
     Dosage: UNK
  12. VANCOMYCIN [Concomitant]
     Active Substance: VANCOMYCIN
     Dosage: UNK
  13. IRON [Concomitant]
     Active Substance: IRON
     Dosage: UNK

REACTIONS (4)
  - Hospitalisation [Unknown]
  - Illness [Unknown]
  - Insurance issue [Unknown]
  - Product use issue [Unknown]
